FAERS Safety Report 13253052 (Version 2)
Quarter: 2017Q2

REPORT INFORMATION
  Report Type: Spontaneous
  Country: US (occurrence: US)
  Receive Date: 20170220
  Receipt Date: 20170523
  Transmission Date: 20170830
  Serious: Yes (Hospitalization)
  Sender: FDA-Public Use
  Company Number: US-UNITED THERAPEUTICS-UNT-2017-002036

PATIENT
  Age: 14 Year
  Sex: Female
  Weight: 38.55 kg

DRUGS (1)
  1. REMODULIN [Suspect]
     Active Substance: TREPROSTINIL
     Indication: PULMONARY HYPERTENSION
     Dosage: 0.030 ?G/KG, CONTINUING
     Route: 058
     Dates: start: 20161017

REACTIONS (3)
  - Granuloma [Recovered/Resolved]
  - Medical device removal [Recovered/Resolved]
  - Medical procedure [Recovered/Resolved]

NARRATIVE: CASE EVENT DATE: 201702
